FAERS Safety Report 5264862-0 (Version None)
Quarter: 2007Q1

REPORT INFORMATION
  Report Type: 
  Country: None (occurrence: None)
  Receive Date: 20061117
  Receipt Date: 20060731
  Transmission Date: 20070707
  Serious: Yes (Other)
  Sender: FDA-Public Use
  Company Number: US-JNJFOC-20060800124

PATIENT
  Age: 49 Year
  Sex: Female
  Weight: 63.5036 kg

DRUGS (3)
  1. LEVAQUIN [Suspect]
     Indication: ABSCESS
     Dosage: 500 MG, 1 IN 1 DAY, ORAL
     Route: 048
     Dates: start: 20060723, end: 20060724
  2. DICLOXACILLIN (TABLET) DICLOXACILLIN [Concomitant]
  3. HYDROCODONE (HYDROCODONE) [Concomitant]

REACTIONS (3)
  - HALLUCINATION [None]
  - PALPITATIONS [None]
  - PARAESTHESIA [None]
